FAERS Safety Report 9533491 (Version 1)
Quarter: 2013Q3

REPORT INFORMATION
  Report Type: Spontaneous
  Country: US (occurrence: US)
  Receive Date: 20130918
  Receipt Date: 20130918
  Transmission Date: 20140515
  Serious: No
  Sender: FDA-Public Use
  Company Number: US-PURDUE-USA-2011-0078248

PATIENT
  Sex: Female

DRUGS (7)
  1. BUTRANS [Suspect]
     Indication: PAIN
     Dosage: 5 MCG/HR, UNK
     Route: 062
     Dates: start: 20111019
  2. BUTRANS [Suspect]
     Dosage: 10 MCG/HR, UNK
     Route: 062
     Dates: start: 20111102
  3. BUTRANS [Suspect]
     Dosage: 10 MCG/HR, UNK
     Route: 062
     Dates: start: 20111107
  4. PLAQUENIL                          /00072602/ [Concomitant]
  5. PREDNISONE [Concomitant]
  6. METHOTREXATE [Concomitant]
  7. AVINZA [Suspect]
     Indication: PRODUCT USED FOR UNKNOWN INDICATION
     Dosage: 30 MG, DAILY
     Dates: start: 201111, end: 20111122

REACTIONS (12)
  - Drug withdrawal syndrome [Unknown]
  - Weight increased [Unknown]
  - Urinary tract infection [Unknown]
  - Swelling [Unknown]
  - Oedema [Unknown]
  - Application site perspiration [Unknown]
  - Medication residue present [Unknown]
  - Application site erythema [Unknown]
  - Product adhesion issue [Unknown]
  - Rash [Unknown]
  - Pruritus generalised [Unknown]
  - Eyelid oedema [Unknown]
